FAERS Safety Report 6483233-2 (Version None)
Quarter: 2009Q4

REPORT INFORMATION
  Report Type: 
  Country: None (occurrence: None)
  Receive Date: 20091209
  Receipt Date: 20090423
  Transmission Date: 20100525
  Serious: No
  Sender: FDA-Public Use
  Company Number: US-AMGEN-KDL344231

PATIENT
  Sex: Female
  Weight: 98.1 kg

DRUGS (6)
  1. ENBREL [Suspect]
     Indication: RHEUMATOID ARTHRITIS
     Route: 058
     Dates: start: 20020601
  2. METHOTREXATE [Concomitant]
     Route: 048
     Dates: start: 20020425
  3. PREDNISONE [Concomitant]
     Dates: start: 20020425
  4. UNSPECIFIED MEDICATION [Concomitant]
  5. FOLIC ACID [Concomitant]
     Dates: start: 20020425
  6. TRIEST [Concomitant]
     Dates: start: 20020425

REACTIONS (3)
  - INJECTION SITE HAEMATOMA [None]
  - INJECTION SITE PAIN [None]
  - RHEUMATOID ARTHRITIS [None]
